FAERS Safety Report 21050933 (Version 2)
Quarter: 2022Q3

REPORT INFORMATION
  Report Type: Spontaneous
  Country: FR (occurrence: FR)
  Receive Date: 20220707
  Receipt Date: 20220929
  Transmission Date: 20221027
  Serious: Yes (Hospitalization)
  Sender: FDA-Public Use
  Company Number: None

PATIENT
  Age: 75 Year
  Sex: Male
  Weight: 69 kg

DRUGS (17)
  1. ETOPOSIDE PHOSPHATE [Suspect]
     Active Substance: ETOPOSIDE PHOSPHATE
     Indication: Small cell lung cancer metastatic
     Dosage: CONTINUED SINCE 15/06/2022 ALONE, ^IN MAINTENANCE^
     Route: 042
     Dates: start: 20220412, end: 20220617
  2. CARBOPLATIN [Suspect]
     Active Substance: CARBOPLATIN
     Indication: Small cell lung cancer metastatic
     Route: 042
     Dates: start: 20220412, end: 20220615
  3. IMFINZI [Suspect]
     Active Substance: DURVALUMAB
     Indication: Small cell lung cancer metastatic
     Route: 042
     Dates: start: 20220615
  4. GAVISCON [Concomitant]
     Active Substance: ALUMINUM HYDROXIDE\MAGNESIUM CARBONATE
     Dosage: 1-1-1
     Route: 048
  5. METFORMIN HYDROCHLORIDE [Concomitant]
     Active Substance: METFORMIN HYDROCHLORIDE
     Dosage: 1-0-1
     Route: 048
  6. AMLODIPINE ARROW 5 mg, tablet [Concomitant]
     Dosage: 0-0-2
     Route: 048
  7. LANSOPRAZOLE VIATRIS 30 mg, orodispersible tablet [Concomitant]
     Dosage: 0-0-1
     Route: 048
  8. PHLOROGLUCINOL [Concomitant]
     Active Substance: PHLOROGLUCINOL
     Dosage: 2-2-2 IF PAIN
     Route: 048
  9. XATRAL LP 10 mg, extended-release tablet [Concomitant]
     Dosage: 0-0-1
     Route: 048
  10. FINASTERIDE ARROW LAB 5 mg, pellicle tablet [Concomitant]
     Dosage: 1/D
     Route: 048
  11. INSULIN GLARGINE [Concomitant]
     Active Substance: INSULIN GLARGINE
     Dosage: 0-0-12U
     Route: 058
  12. DOLIPRANE [Concomitant]
     Active Substance: ACETAMINOPHEN
     Dosage: 2-2-2
     Route: 048
  13. HUMALOG [Concomitant]
     Active Substance: INSULIN LISPRO
     Dosage: 5U-5U-5U
     Route: 058
  14. KARDEGIC 75 mg, powder for drinkable solution in sachet [Concomitant]
     Dosage: 1-0-0
     Route: 048
  15. VILDAGLIPTIN [Concomitant]
     Active Substance: VILDAGLIPTIN
     Dosage: 1-0-1
     Route: 048
  16. ZOPICLONE [Concomitant]
     Active Substance: ZOPICLONE
     Dosage: 0-0-1
     Route: 048
  17. ATORVASTATINE ARROW GENERIQUES 10 mg, pellicle tablet [Concomitant]
     Dosage: 0-0-1
     Route: 048

REACTIONS (3)
  - Hyperleukocytosis [Recovered/Resolved]
  - Thrombocytosis [Recovered/Resolved]
  - Neutrophil count increased [Recovered/Resolved]

NARRATIVE: CASE EVENT DATE: 20220621
